FAERS Safety Report 11489974 (Version 1)
Quarter: 2015Q3

REPORT INFORMATION
  Report Type: Spontaneous
  Country: US (occurrence: US)
  Receive Date: 20150910
  Receipt Date: 20150910
  Transmission Date: 20151125
  Serious: No
  Sender: FDA-Public Use
  Company Number: US-TEVA-589018USA

PATIENT
  Sex: Female

DRUGS (1)
  1. COPAXONE [Suspect]
     Active Substance: GLATIRAMER ACETATE
     Route: 065

REACTIONS (6)
  - Anxiety [Unknown]
  - Tremor [Unknown]
  - Pruritus [Unknown]
  - Dyspnoea [Unknown]
  - Flushing [Unknown]
  - Headache [Unknown]
